FAERS Safety Report 4576467-5 (Version None)
Quarter: 2005Q1

REPORT INFORMATION
  Report Type: 
  Country: None (occurrence: None)
  Receive Date: 20050119
  Receipt Date: 20040329
  Transmission Date: 20050727
  Serious: Yes (Other)
  Sender: FDA-Public Use
  Company Number: A03200401005

PATIENT
  Age: 72 Year
  Sex: Male
  Weight: 81.6475 kg

DRUGS (3)
  1. PLAVIX [Suspect]
     Indication: ANGINA PECTORIS
     Dosage: 75 MG QD - ORAL
     Route: 048
     Dates: start: 20040325, end: 20040331
  2. ATENOLOL [Concomitant]
  3. ACETYL SALICYLIC ACID USP BAT [Concomitant]

REACTIONS (1)
  - ANGINA PECTORIS [None]
